FAERS Safety Report 4828150-6 (Version None)
Quarter: 2005Q4

REPORT INFORMATION
  Report Type: 
  Country: None (occurrence: None)
  Receive Date: 20051110
  Receipt Date: 20051103
  Transmission Date: 20060501
  Serious: Yes (Hospitalization)
  Sender: FDA-Public Use
  Company Number: ESWYE115204NOV05

PATIENT
  Age: 29 Year
  Sex: Female

DRUGS (7)
  1. VENLAFAXINE HCL [Suspect]
     Indication: DEPRESSION
     Dosage: 0.3 G 1X PER 1 DAY ORAL
     Route: 048
     Dates: start: 20030520, end: 20050606
  2. CLORAZEPATE DIPOTASSIUM [Concomitant]
  3. DALPARAN (ZOLPIDEM TARTRATE) [Concomitant]
  4. DEPAKENE [Concomitant]
  5. LEVOTHROID [Concomitant]
  6. MAXALT [Concomitant]
  7. TORADOL [Concomitant]

REACTIONS (3)
  - BLINDNESS [None]
  - MYDRIASIS [None]
  - PHOTOPHOBIA [None]
